FAERS Safety Report 9992812 (Version 3)
Quarter: 2014Q2

REPORT INFORMATION
  Report Type: Spontaneous
  Country: FR (occurrence: FR)
  Receive Date: 20140310
  Receipt Date: 20140418
  Transmission Date: 20141212
  Serious: Yes (Other)
  Sender: FDA-Public Use
  Company Number: FR-BRISTOL-MYERS SQUIBB COMPANY-20363180

PATIENT
  Age: 64 Year
  Sex: Male
  Weight: 69 kg

DRUGS (4)
  1. ONGLYZA TABS [Suspect]
     Indication: TYPE 2 DIABETES MELLITUS
     Route: 048
     Dates: start: 20130904, end: 20140120
  2. COTAREG [Concomitant]
     Dosage: 1 DF = 160MG/25MG
     Route: 048
     Dates: start: 20040428
  3. BISOPROLOL [Concomitant]
     Route: 048
     Dates: start: 20130628
  4. PRAVASTATINE [Concomitant]
     Route: 048
     Dates: start: 20101008

REACTIONS (3)
  - Colitis ulcerative [Not Recovered/Not Resolved]
  - Weight decreased [Not Recovered/Not Resolved]
  - Haematochezia [Not Recovered/Not Resolved]
